FAERS Safety Report 19109084 (Version 2)
Quarter: 2021Q2

REPORT INFORMATION
  Report Type: Report from Study
  Country: CA (occurrence: CA)
  Receive Date: 20210408
  Receipt Date: 20210504
  Transmission Date: 20210717
  Serious: Yes (Hospitalization, Other)
  Sender: FDA-Public Use
  Company Number: CA-HLS-202003849

PATIENT
  Age: 47 Year
  Sex: Male

DRUGS (4)
  1. CLOZARIL [Suspect]
     Active Substance: CLOZAPINE
     Indication: HALLUCINATION, VISUAL
     Dosage: 50 MG PO QHS
     Route: 048
     Dates: start: 20040219
  2. RIVOTRIL [Concomitant]
     Active Substance: CLONAZEPAM
     Indication: PRODUCT USED FOR UNKNOWN INDICATION
     Dosage: 0.5MG 2 TABS PO TID + 1,25 TABS QHS
     Route: 048
  3. FRISIUM [Concomitant]
     Active Substance: CLOBAZAM
     Indication: PRODUCT USED FOR UNKNOWN INDICATION
     Dosage: 15MG PO QHS?
     Route: 048
  4. DILANTIN [Concomitant]
     Active Substance: PHENYTOIN
     Indication: PRODUCT USED FOR UNKNOWN INDICATION
     Dosage: 137.5MG PO QAM + 137.5MG PO QHS
     Route: 048

REACTIONS (4)
  - COVID-19 [Unknown]
  - Neutropenia [Recovered/Resolved]
  - Off label use [Unknown]
  - White blood cell count decreased [Recovered/Resolved]

NARRATIVE: CASE EVENT DATE: 202103
